FAERS Safety Report 7362077-3 (Version None)
Quarter: 2011Q1

REPORT INFORMATION
  Report Type: 
  Country: None (occurrence: None)
  Receive Date: 20110315
  Receipt Date: 20110315
  Transmission Date: 20110831
  Serious: Yes (Hospitalization)
  Sender: FDA-Public Use
  Company Number: None

PATIENT
  Age: 54 Year
  Sex: Female
  Weight: 51.7101 kg

DRUGS (1)
  1. PULMICORT FLEXHALER [Suspect]
     Indication: RESPIRATORY DISORDER
     Dosage: INHALE 2 PUFFS TWICE A DAY INHAL
     Route: 055
     Dates: start: 20110207, end: 20110208

REACTIONS (9)
  - FEELING ABNORMAL [None]
  - HYPERSENSITIVITY [None]
  - HEADACHE [None]
  - ASTHENIA [None]
  - COLD SWEAT [None]
  - CHEST PAIN [None]
  - DIZZINESS [None]
  - INFLUENZA [None]
  - DYSPNOEA [None]
